FAERS Safety Report 25791047 (Version 1)
Quarter: 2025Q3

REPORT INFORMATION
  Report Type: Spontaneous
  Country: US (occurrence: None)
  Receive Date: 20250910
  Receipt Date: 20250910
  Transmission Date: 20251021
  Serious: Yes (Other)
  Sender: FDA-CTU
  Company Number: None

PATIENT
  Age: 73 Year
  Sex: Female

DRUGS (16)
  1. DUPIXENT [Suspect]
     Active Substance: DUPILUMAB
     Indication: Dermatitis atopic
     Route: 058
     Dates: start: 20250205
  2. PROAIR HFA [Concomitant]
     Active Substance: ALBUTEROL SULFATE
  3. AIMOVIG [Concomitant]
     Active Substance: ERENUMAB-AOOE
  4. AIRDUO DIGIHALER [Concomitant]
     Active Substance: FLUTICASONE PROPIONATE\SALMETEROL XINAFOATE
  5. Breo Ellipta Inhaler [Concomitant]
  6. BUPROPION HYDROCHLORIDE [Concomitant]
     Active Substance: BUPROPION HYDROCHLORIDE
  7. ESCITALOPRAM [Concomitant]
     Active Substance: ESCITALOPRAM OXALATE
  8. GABAPENTIN [Concomitant]
     Active Substance: GABAPENTIN
  9. MOMETASONE [Concomitant]
     Active Substance: MOMETASONE
  10. PANTOPRAZOLE [Concomitant]
     Active Substance: PANTOPRAZOLE
  11. PLAVIX [Concomitant]
     Active Substance: CLOPIDOGREL BISULFATE
  12. RIZATRIPTAN [Concomitant]
     Active Substance: RIZATRIPTAN
  13. TRAZODONE [Concomitant]
     Active Substance: TRAZODONE HYDROCHLORIDE
  14. VITAMIN B12 [Concomitant]
     Active Substance: CYANOCOBALAMIN
  15. TRIAMCINOLONE [Concomitant]
     Active Substance: TRIAMCINOLONE
  16. PREDNISONE [Concomitant]
     Active Substance: PREDNISONE

REACTIONS (1)
  - Plasma cell myeloma [None]

NARRATIVE: CASE EVENT DATE: 20250728
